FAERS Safety Report 22594514 (Version 1)
Quarter: 2023Q2

REPORT INFORMATION
  Report Type: Report from Study
  Country: US (occurrence: US)
  Receive Date: 20230613
  Receipt Date: 20230613
  Transmission Date: 20230721
  Serious: No
  Sender: FDA-Public Use
  Company Number: US-002147023-NVSC2023US130129

PATIENT
  Sex: Female

DRUGS (9)
  1. CLOBETASOL [Suspect]
     Active Substance: CLOBETASOL
     Indication: Product used for unknown indication
     Dosage: UNK
     Route: 065
  2. SULFACETAMIDE SODIUM [Suspect]
     Active Substance: SULFACETAMIDE SODIUM
     Indication: Psoriasis
     Dosage: UNK
     Route: 065
  3. DOXYCYCLINE HYCLATE [Suspect]
     Active Substance: DOXYCYCLINE HYCLATE
     Indication: Psoriasis
     Dosage: UNK
     Route: 065
  4. DOXYCYCLINE HYCLATE [Suspect]
     Active Substance: DOXYCYCLINE HYCLATE
     Indication: Psoriasis
     Dosage: UNK
     Route: 065
  5. CLINDAMYCIN [Suspect]
     Active Substance: CLINDAMYCIN
     Indication: Psoriasis
     Dosage: UNK
     Route: 065
  6. SPIRONOLACTONE [Suspect]
     Active Substance: SPIRONOLACTONE
     Indication: Psoriasis
     Dosage: 25 MG
     Route: 065
  7. SPIRONOLACTONE [Suspect]
     Active Substance: SPIRONOLACTONE
     Dosage: 50 MG
     Route: 065
  8. XYLOCAINE [Suspect]
     Active Substance: LIDOCAINE HYDROCHLORIDE
     Indication: Psoriasis
     Dosage: UNK
     Route: 065
  9. HUMIRA [Suspect]
     Active Substance: ADALIMUMAB
     Indication: Product used for unknown indication
     Dosage: UNK
     Route: 065

REACTIONS (4)
  - Hidradenitis [Unknown]
  - Dermal cyst [Unknown]
  - Drug ineffective [Unknown]
  - Erythema [Unknown]
